FAERS Safety Report 15962905 (Version 1)
Quarter: 2019Q1

REPORT INFORMATION
  Report Type: Report from Study
  Country: US (occurrence: US)
  Receive Date: 20190214
  Receipt Date: 20190214
  Transmission Date: 20190417
  Serious: Yes (Hospitalization)
  Sender: FDA-Public Use
  Company Number: US-EXELIXIS-CABO-18017514

PATIENT
  Sex: Male

DRUGS (1)
  1. CABOMETYX [Suspect]
     Active Substance: CABOZANTINIB S-MALATE
     Indication: RENAL CANCER
     Dosage: 60 MG, QD
     Route: 048
     Dates: start: 20181121

REACTIONS (7)
  - Burns third degree [Unknown]
  - Erythema [Unknown]
  - Product dispensing error [Unknown]
  - Pain in extremity [Unknown]
  - Dry skin [Unknown]
  - Hypertension [Unknown]
  - Malaise [Unknown]
